FAERS Safety Report 8155399-X (Version None)
Quarter: 2012Q1

REPORT INFORMATION
  Report Type: 
  Country: None (occurrence: None)
  Receive Date: 20120222
  Receipt Date: 20120213
  Transmission Date: 20120608
  Serious: Yes (Hospitalization)
  Sender: FDA-Public Use
  Company Number: US-BRISTOL-MYERS SQUIBB COMPANY-16396764

PATIENT
  Age: 81 Year
  Sex: Male

DRUGS (1)
  1. COUMADIN [Suspect]
     Indication: COAGULOPATHY
     Dosage: PRESCRIPTION NUMBER 7197675,PRESCRIBED DATE 10FEB2012

REACTIONS (9)
  - DYSPNOEA [None]
  - PALLOR [None]
  - ASTHENIA [None]
  - ABDOMINAL PAIN [None]
  - RASH [None]
  - VISUAL IMPAIRMENT [None]
  - PRURITUS [None]
  - SURGERY [None]
  - FATIGUE [None]
